FAERS Safety Report 8370551-6 (Version None)
Quarter: 2012Q1

REPORT INFORMATION
  Report Type: 
  Country: None (occurrence: None)
  Receive Date: 20120323
  Receipt Date: 20111102
  Transmission Date: 20120608
  Serious: Yes (Other)
  Sender: FDA-Public Use
  Company Number: 163-21880-11101054

PATIENT
  Age: 68 Year
  Sex: Male

DRUGS (5)
  1. FENTANYL-100 [Concomitant]
  2. ONDANSETRON [Concomitant]
  3. DOCUSATE [Concomitant]
  4. REVLIMID [Suspect]
     Indication: MULTIPLE MYELOMA
     Dosage: 15 MG, DAILY FOR 21/28, PO
     Route: 048
     Dates: start: 20110414, end: 20110420
  5. HYDROMORPHONE HCL [Concomitant]

REACTIONS (2)
  - MUSCLE TWITCHING [None]
  - HALLUCINATION [None]
